FAERS Safety Report 8814707 (Version 1)
Quarter: 2012Q4

REPORT INFORMATION
  Report Type: 
  Country: ZA (occurrence: ZA)
  Receive Date: 20120928
  Receipt Date: 20120928
  Transmission Date: 20130627
  Serious: Yes (Hospitalization)
  Sender: FDA-Public Use
  Company Number: ZA-SANOFI-AVENTIS-2012SA069370

PATIENT
  Age: 47 Year
  Sex: Male

DRUGS (3)
  1. LANTUS SOLOSTAR [Suspect]
     Indication: TYPE 2 DIABETES MELLITUS
     Dosage: Dose:68 unit(s)
     Route: 058
     Dates: start: 201108
  2. SOLOSTAR [Suspect]
     Indication: DEVICE THERAPY
     Dates: start: 201108
  3. GLUCOPHAGE [Concomitant]
     Route: 048
     Dates: start: 2010

REACTIONS (1)
  - Lung infection [Recovered/Resolved]
